FAERS Safety Report 14191034 (Version 2)
Quarter: 2017Q4

REPORT INFORMATION
  Report Type: Spontaneous
  Country: RU (occurrence: RU)
  Receive Date: 20171115
  Receipt Date: 20171129
  Transmission Date: 20180321
  Serious: Yes (Other)
  Sender: FDA-Public Use
  Company Number: RU-PFIZER INC-2017485020

PATIENT
  Age: 58 Year
  Sex: Female

DRUGS (4)
  1. PRESTARIUM [Concomitant]
     Active Substance: PERINDOPRIL
     Dosage: UNK
  2. INSULIN [Concomitant]
     Active Substance: INSULIN NOS
     Indication: TYPE 1 DIABETES MELLITUS
     Dosage: UNK UNK, DAILY (A TOTAL OF 40 DOSE FORMS)
  3. GINKGO BILOBA [Concomitant]
     Active Substance: GINKGO
     Dosage: UNK
  4. LIPRIMAR [Suspect]
     Active Substance: ATORVASTATIN CALCIUM
     Indication: DYSLIPIDAEMIA
     Dosage: 20 MG, DAILY
     Route: 048
     Dates: start: 201708, end: 20171108

REACTIONS (1)
  - Hypoglycaemia [Not Recovered/Not Resolved]

NARRATIVE: CASE EVENT DATE: 201708
